FAERS Safety Report 8204211-9 (Version None)
Quarter: 2012Q1

REPORT INFORMATION
  Report Type: 
  Country: None (occurrence: None)
  Receive Date: 20120313
  Receipt Date: 20120307
  Transmission Date: 20120608
  Serious: Yes (Life-Threatening, Hospitalization, Other)
  Sender: FDA-Public Use
  Company Number: CA-NOVOPROD-343413

PATIENT
  Age: 52 Year
  Sex: Female
  Weight: 102.27 kg

DRUGS (9)
  1. NOVORAPID FLEXPEN [Suspect]
     Dosage: 134 U, QD
     Route: 058
     Dates: start: 20120118
  2. INSULIN DETEMIR FLEXPEN [Suspect]
     Indication: TYPE 2 DIABETES MELLITUS
     Dosage: UNK
     Dates: start: 20110412, end: 20120115
  3. NOVORAPID FLEXPEN [Suspect]
     Indication: TYPE 2 DIABETES MELLITUS
     Dosage: UNK U, QD
     Route: 058
  4. NOVORAPID FLEXPEN [Suspect]
     Dosage: 300 U, SINGLE
     Dates: start: 20120115, end: 20120115
  5. POTASSIUM CHLORIDE [Concomitant]
     Dosage: 3600 (1200 X 3) MG,
     Route: 048
     Dates: start: 20120116, end: 20120117
  6. RAMIPRIL [Concomitant]
     Dosage: 10 MG, QD
     Route: 048
     Dates: start: 20120117, end: 20120117
  7. INSULIN DETEMIR FLEXPEN [Suspect]
     Dosage: 123 U, QD
     Route: 058
     Dates: start: 20120118
  8. SIMVASTATIN [Concomitant]
     Dosage: 20 MG, QD
     Route: 048
     Dates: start: 20120116, end: 20120117
  9. DALTEPARIN SODIUM [Concomitant]
     Dosage: 5000 U, QD
     Route: 058
     Dates: start: 20120116, end: 20120117

REACTIONS (2)
  - ACUTE STRESS DISORDER [None]
  - INTENTIONAL OVERDOSE [None]
